FAERS Safety Report 5708622-2 (Version None)
Quarter: 2008Q2

REPORT INFORMATION
  Report Type: 
  Country: None (occurrence: None)
  Receive Date: 20080417
  Receipt Date: 20080409
  Transmission Date: 20081010
  Serious: Yes (Hospitalization, Other)
  Sender: FDA-Public Use
  Company Number: US-GENENTECH-257900

PATIENT
  Sex: Female
  Weight: 115.4 kg

DRUGS (19)
  1. RITUXIMAB [Suspect]
     Indication: RHEUMATOID ARTHRITIS
     Dosage: 1000 MG, DAYS 1+15
     Route: 042
     Dates: start: 20070905
  2. FLUOXETINE [Concomitant]
     Indication: DEPRESSION
     Dosage: 40 MG, QD
     Dates: start: 20070601
  3. PANTOPRAZOLE SODIUM [Concomitant]
     Indication: GASTROOESOPHAGEAL REFLUX DISEASE
     Dosage: UNK, UNK
     Dates: start: 20061001, end: 20080115
  4. FUROSEMIDE [Concomitant]
     Indication: OEDEMA PERIPHERAL
     Dosage: 40 MG, QD
     Dates: start: 20020531
  5. K-DUR [Concomitant]
     Indication: VITAMIN SUPPLEMENTATION
     Dosage: UNK, UNK
     Dates: start: 20020531, end: 20080101
  6. IRBESARTAN [Concomitant]
     Indication: HYPERTENSION
     Dosage: UNK, UNK
     Dates: start: 20050101, end: 20080115
  7. ALBUTEROL [Concomitant]
     Indication: HYPERSENSITIVITY
     Dates: start: 19970101
  8. CALCIUM/VITAMIN D [Concomitant]
     Indication: OSTEOPENIA
     Dosage: UNK, UNK
     Dates: start: 20041119, end: 20080101
  9. CALCIUM/VITAMIN D [Concomitant]
     Indication: VITAMIN SUPPLEMENTATION
  10. HUMULIN 70/30 [Concomitant]
     Indication: DIABETES MELLITUS
     Dosage: 45 UNIT, QAM
     Dates: start: 19920101
  11. HUMULIN 70/30 [Concomitant]
     Dosage: 15 UNIT, QHS
  12. EXCEDRIN (UNITED STATES) [Concomitant]
     Indication: ARTHRALGIA
     Dates: start: 20071001
  13. ATENOLOL [Concomitant]
     Indication: HYPERTENSION
     Dosage: 50 MG, QD
     Dates: start: 20080115
  14. METOCLOPRAMIDE [Concomitant]
     Indication: GASTROOESOPHAGEAL REFLUX DISEASE
     Dosage: 10 MG, UNK
     Dates: start: 20080115
  15. METOCLOPRAMIDE [Concomitant]
     Dosage: 10 MG, QHS
  16. OMEPRAZOLE [Concomitant]
     Indication: GASTROOESOPHAGEAL REFLUX DISEASE
     Dosage: 20 MG, QD
     Dates: start: 20080115
  17. FOLIC ACID [Concomitant]
     Indication: DRUG USE FOR UNKNOWN INDICATION
     Dosage: 1 MG, QD
  18. HYDROXYCHLOROQUINE [Concomitant]
     Indication: DRUG USE FOR UNKNOWN INDICATION
     Dosage: 200 MG, BID
  19. METHOTREXATE [Concomitant]
     Indication: DRUG USE FOR UNKNOWN INDICATION
     Dosage: 20 MG, 1/WEEK

REACTIONS (1)
  - DYSPNOEA [None]
